FAERS Safety Report 5767367-3 (Version None)
Quarter: 2008Q2

REPORT INFORMATION
  Report Type: 
  Country: None (occurrence: None)
  Receive Date: 20080612
  Receipt Date: 20080606
  Transmission Date: 20081010
  Serious: Yes (Other)
  Sender: FDA-Public Use
  Company Number: B0360236A

PATIENT
  Age: 58 Year
  Sex: Female

DRUGS (14)
  1. PAROXETINE HCL [Suspect]
     Route: 065
     Dates: start: 19950824
  2. MIRTAZAPINE [Suspect]
     Route: 065
     Dates: start: 20020201
  3. PROPRANOLOL [Concomitant]
     Dosage: 40MG TWICE PER DAY
     Route: 065
     Dates: start: 19971210
  4. THIORIDAZINE HCL [Concomitant]
     Route: 065
     Dates: end: 19970101
  5. BUSPIRONE HCL [Concomitant]
     Dosage: 5MG UNKNOWN
     Route: 065
     Dates: start: 20010212
  6. GABAPENTIN [Concomitant]
     Route: 065
     Dates: start: 20020101
  7. PROTHIADEN [Concomitant]
     Dates: start: 19870705
  8. BUSPAR [Concomitant]
     Dates: start: 20060109
  9. AMITRIPTYLINE HCL [Concomitant]
     Dates: start: 20011114
  10. ZISPIN [Concomitant]
     Dates: start: 20020201
  11. DIAZEPAM [Concomitant]
     Dates: start: 19890506
  12. MORPHINE [Concomitant]
  13. ATENOLOL [Concomitant]
     Indication: HYPERTENSION
     Dates: start: 20060101
  14. ESCITALOPRAM [Concomitant]

REACTIONS (24)
  - BALANCE DISORDER [None]
  - COORDINATION ABNORMAL [None]
  - DEPRESSED MOOD [None]
  - DEPRESSION [None]
  - DRUG WITHDRAWAL SYNDROME [None]
  - FATIGUE [None]
  - GAIT DISTURBANCE [None]
  - GASTROINTESTINAL HYPERMOTILITY [None]
  - HEADACHE [None]
  - HEMIPARESIS [None]
  - HYPERHIDROSIS [None]
  - HYPOAESTHESIA [None]
  - HYPOAESTHESIA FACIAL [None]
  - HYPOAESTHESIA ORAL [None]
  - INAPPROPRIATE AFFECT [None]
  - INSOMNIA [None]
  - IRRITABILITY [None]
  - MOBILITY DECREASED [None]
  - NAUSEA [None]
  - NERVOUS SYSTEM DISORDER [None]
  - PAIN [None]
  - PARAESTHESIA [None]
  - SUICIDAL IDEATION [None]
  - TRIGEMINAL NEURALGIA [None]
